FAERS Safety Report 11654036 (Version 3)
Quarter: 2015Q4

REPORT INFORMATION
  Report Type: Report from Study
  Country: US (occurrence: US)
  Receive Date: 20151023
  Receipt Date: 20151119
  Transmission Date: 20160304
  Serious: Yes (Other)
  Sender: FDA-Public Use
  Company Number: US-ROCHE-1649447

PATIENT
  Age: 79 Year
  Sex: Male
  Weight: 97.16 kg

DRUGS (14)
  1. PLAVIX [Concomitant]
     Active Substance: CLOPIDOGREL BISULFATE
  2. NITROQUICK [Concomitant]
     Active Substance: NITROGLYCERIN
  3. ALLOPURINOL. [Concomitant]
     Active Substance: ALLOPURINOL
     Route: 065
  4. PRAVACHOL [Concomitant]
     Active Substance: PRAVASTATIN SODIUM
  5. ESBRIET [Suspect]
     Active Substance: PIRFENIDONE
     Indication: IDIOPATHIC PULMONARY FIBROSIS
     Dosage: TWO 267MG CAPSULES THREE TIMES A DAY
     Route: 048
     Dates: start: 20151012, end: 20151021
  6. ZANTAC [Concomitant]
     Active Substance: RANITIDINE HYDROCHLORIDE
  7. DIOVAN HCT [Concomitant]
     Active Substance: HYDROCHLOROTHIAZIDE\VALSARTAN
  8. ESBRIET [Suspect]
     Active Substance: PIRFENIDONE
     Dosage: ONE 267MG THREE TIMES A DAY
     Route: 048
     Dates: start: 20151104, end: 20151106
  9. BABY ASPIRIN [Concomitant]
     Active Substance: ASPIRIN
  10. ATENOLOL. [Concomitant]
     Active Substance: ATENOLOL
  11. POTASSIUM CHLORIDE. [Concomitant]
     Active Substance: POTASSIUM CHLORIDE
  12. PROCARDIA XL [Concomitant]
     Active Substance: NIFEDIPINE
  13. GABAPENTIN. [Concomitant]
     Active Substance: GABAPENTIN
  14. PRESERVISION [Concomitant]
     Active Substance: MINERALS\VITAMINS

REACTIONS (4)
  - Heart rate decreased [Unknown]
  - Anxiety [Unknown]
  - Dyspnoea [Unknown]
  - Drug dose omission [Unknown]

NARRATIVE: CASE EVENT DATE: 20151021
